FAERS Safety Report 21182955 (Version 1)
Quarter: 2022Q3

REPORT INFORMATION
  Report Type: Spontaneous
  Country: US (occurrence: US)
  Receive Date: 20220808
  Receipt Date: 20220808
  Transmission Date: 20221026
  Serious: No
  Sender: FDA-Public Use
  Company Number: US-BAUSCH-BL-2022-019442

PATIENT
  Age: 63 Year
  Sex: Female

DRUGS (3)
  1. LACRISERT [Suspect]
     Active Substance: HYDROXYPROPYL CELLULOSE
     Indication: Dry eye
     Dosage: PATIENT HAD BEEN WITHOUT MEDICATION SINCE APPROXIMATELY /OCT/2021
     Route: 047
     Dates: start: 1985, end: 202110
  2. POLYVINYL ALCOHOL\POVIDONE [Concomitant]
     Active Substance: POLYVINYL ALCOHOL\POVIDONE
     Indication: Dry eye
  3. REFRESH GEL [Concomitant]
     Indication: Dry eye

REACTIONS (4)
  - Eye ulcer [Unknown]
  - Superficial injury of eye [Unknown]
  - Product use issue [Unknown]
  - Product availability issue [Unknown]

NARRATIVE: CASE EVENT DATE: 20211001
